FAERS Safety Report 24758847 (Version 3)
Quarter: 2025Q2

REPORT INFORMATION
  Report Type: Spontaneous
  Country: US (occurrence: US)
  Receive Date: 20241220
  Receipt Date: 20250513
  Transmission Date: 20250717
  Serious: Yes (Other)
  Sender: ITALFARMACO SPA
  Company Number: US-ITALFARMACO SPA-2167491

PATIENT
  Age: 14 Year
  Sex: Male
  Weight: 58 kg

DRUGS (6)
  1. DUVYZAT [Suspect]
     Active Substance: GIVINOSTAT
     Indication: Duchenne muscular dystrophy
     Dates: start: 20241123
  2. EMFLAZA [Concomitant]
     Active Substance: DEFLAZACORT
  3. TESTOSTERONE [Concomitant]
     Active Substance: TESTOSTERONE
  4. LISINOPRIL [Concomitant]
     Active Substance: LISINOPRIL
  5. VYVANSE [Concomitant]
     Active Substance: LISDEXAMFETAMINE DIMESYLATE
  6. VITAMIN D NOS [Concomitant]
     Active Substance: CHOLECALCIFEROL\ERGOCALCIFEROL

REACTIONS (2)
  - Heart rate increased [Recovering/Resolving]
  - Foot fracture [Recovering/Resolving]
